FAERS Safety Report 26045025 (Version 1)
Quarter: 2025Q4

REPORT INFORMATION
  Report Type: Spontaneous
  Country: BR (occurrence: BR)
  Receive Date: 20251114
  Receipt Date: 20251114
  Transmission Date: 20260118
  Serious: Yes (Other)
  Sender: TAKEDA
  Company Number: BR-JNJFOC-20251146295

PATIENT
  Age: 78 Year
  Sex: Male
  Weight: 87 kg

DRUGS (3)
  1. VELCADE [Suspect]
     Active Substance: BORTEZOMIB
     Indication: Plasma cell myeloma
     Dosage: UNK
  2. DEXAMETHASONE [Suspect]
     Active Substance: DEXAMETHASONE
     Indication: Product used for unknown indication
     Dosage: UNK
  3. LENALIDOMIDE [Suspect]
     Active Substance: LENALIDOMIDE
     Indication: Product used for unknown indication
     Dosage: UNK

REACTIONS (8)
  - Cytokine release syndrome [Recovered/Resolved]
  - Thrombocytopenia [Recovering/Resolving]
  - Pyrexia [Recovered/Resolved]
  - Hypotension [Recovering/Resolving]
  - Nausea [Recovered/Resolved]
  - Decreased appetite [Recovering/Resolving]
  - Malaise [Unknown]
  - Off label use [Unknown]

NARRATIVE: CASE EVENT DATE: 20251101
